FAERS Safety Report 19076719 (Version 1)
Quarter: 2021Q1

REPORT INFORMATION
  Report Type: Spontaneous
  Country: DE (occurrence: DE)
  Receive Date: 20210331
  Receipt Date: 20210331
  Transmission Date: 20210420
  Serious: Yes (Hospitalization)
  Sender: FDA-Public Use
  Company Number: DE-ROCHE-2797073

PATIENT
  Age: 51 Year
  Sex: Male

DRUGS (1)
  1. XOLAIR [Suspect]
     Active Substance: OMALIZUMAB
     Indication: ASTHMA
     Route: 065
     Dates: start: 202002

REACTIONS (22)
  - Muscle spasms [Unknown]
  - Skin discolouration [Unknown]
  - Arthralgia [Unknown]
  - Psoriasis [Unknown]
  - Dermatitis [Recovered/Resolved]
  - Peripheral swelling [Unknown]
  - Balance disorder [Unknown]
  - Palpitations [Not Recovered/Not Resolved]
  - Blood pressure decreased [Unknown]
  - Hunger [Not Recovered/Not Resolved]
  - Fatigue [Not Recovered/Not Resolved]
  - Pain of skin [Unknown]
  - Restlessness [Not Recovered/Not Resolved]
  - Paraesthesia [Not Recovered/Not Resolved]
  - Parosmia [Unknown]
  - Dizziness [Not Recovered/Not Resolved]
  - Syncope [Recovered/Resolved]
  - Hyperaesthesia [Unknown]
  - Tremor [Unknown]
  - Weight increased [Unknown]
  - Myalgia [Unknown]
  - Nausea [Unknown]

NARRATIVE: CASE EVENT DATE: 202002
